FAERS Safety Report 20677506 (Version 3)
Quarter: 2022Q3

REPORT INFORMATION
  Report Type: Report from Study
  Country: CA (occurrence: CA)
  Receive Date: 20220406
  Receipt Date: 20220919
  Transmission Date: 20221026
  Serious: Yes (Other)
  Sender: FDA-Public Use
  Company Number: CA-JNJFOC-20220364995

PATIENT
  Age: 65 Year
  Sex: Male

DRUGS (2)
  1. STELARA [Suspect]
     Active Substance: USTEKINUMAB
     Indication: Crohn^s disease
     Dosage: EXPIRY: 01-OCT-2024
     Route: 058
     Dates: start: 20130621
  2. STELARA [Suspect]
     Active Substance: USTEKINUMAB

REACTIONS (3)
  - Kidney infection [Recovered/Resolved]
  - Transient ischaemic attack [Recovering/Resolving]
  - White coat hypertension [Recovering/Resolving]

NARRATIVE: CASE EVENT DATE: 20220530
